FAERS Safety Report 23264595 (Version 7)
Quarter: 2024Q3

REPORT INFORMATION
  Report Type: Report from Study
  Country: US (occurrence: US)
  Receive Date: 20231205
  Receipt Date: 20240729
  Transmission Date: 20241017
  Serious: Yes (Hospitalization)
  Sender: TAKEDA
  Company Number: US-TAKEDA-2023TUS116329

PATIENT
  Sex: Female

DRUGS (1)
  1. HUMAN IMMUNOGLOBULIN G [Suspect]
     Active Substance: HUMAN IMMUNOGLOBULIN G
     Indication: Primary immunodeficiency syndrome
     Dosage: UNK
     Route: 065

REACTIONS (7)
  - Feeding tube user [Unknown]
  - Illness [Unknown]
  - Oesophageal disorder [Unknown]
  - Insurance issue [Unknown]
  - Product use issue [Unknown]
  - Product distribution issue [Unknown]
  - Malaise [Unknown]
